FAERS Safety Report 9336345 (Version 1)
Quarter: 2013Q2

REPORT INFORMATION
  Report Type: Report from Study
  Country: CA (occurrence: CA)
  Receive Date: 20130607
  Receipt Date: 20130607
  Transmission Date: 20140414
  Serious: Yes (Other)
  Sender: FDA-Public Use
  Company Number: CA-JNJFOC-20130523042

PATIENT
  Age: 31 Year
  Sex: Male
  Weight: 113.2 kg

DRUGS (5)
  1. REMICADE [Suspect]
     Indication: ANKYLOSING SPONDYLITIS
     Route: 042
     Dates: start: 20121212
  2. OXYNEO [Concomitant]
     Route: 065
  3. PARIET [Concomitant]
     Route: 065
  4. LYRICA [Concomitant]
     Dosage: IN THE MORNING
     Route: 065
  5. LYRICA [Concomitant]
     Dosage: IN THE EVENING
     Route: 065

REACTIONS (2)
  - Nephrolithiasis [Recovered/Resolved]
  - Flank pain [Recovered/Resolved]
